FAERS Safety Report 11679037 (Version 1)
Quarter: 2015Q4

REPORT INFORMATION
  Report Type: Spontaneous
  Country: JP (occurrence: JP)
  Receive Date: 20151028
  Receipt Date: 20151028
  Transmission Date: 20160304
  Serious: Yes (Other)
  Sender: FDA-Public Use
  Company Number: JP-AMGEN-JPNSP2015112834

PATIENT
  Age: 79 Year
  Sex: Female

DRUGS (1)
  1. PRALIA [Suspect]
     Active Substance: DENOSUMAB
     Indication: OSTEOPOROSIS
     Dosage: 60 MG, 3TIMES
     Route: 065

REACTIONS (4)
  - Renal impairment [Unknown]
  - Blood creatinine increased [Unknown]
  - Hypercalcaemia [Unknown]
  - Malaise [Unknown]
